FAERS Safety Report 4349828-7 (Version None)
Quarter: 2004Q2

REPORT INFORMATION
  Report Type: 
  Country: None (occurrence: None)
  Receive Date: 20040426
  Receipt Date: 20040412
  Transmission Date: 20050107
  Serious: No
  Sender: FDA-Public Use
  Company Number: 04P-163-0257037-00

PATIENT
  Age: 75 Year
  Sex: Male
  Weight: 97.0698 kg

DRUGS (4)
  1. HUMIRA [Suspect]
     Indication: RHEUMATOID ARTHRITIS
     Dosage: 40 MG, 1 IN 2 WK, SUBCUTANEOUS
     Route: 058
     Dates: start: 20030520
  2. RABEPRAZOLE SODIUM [Concomitant]
  3. ALENDRONATE SODIUM [Concomitant]
  4. PREDNISONE [Concomitant]

REACTIONS (2)
  - CORONARY ARTERY THROMBOSIS [None]
  - STOMACH DISCOMFORT [None]
